FAERS Safety Report 7823573-5 (Version None)
Quarter: 2011Q4

REPORT INFORMATION
  Report Type: 
  Country: None (occurrence: None)
  Receive Date: 20111019
  Receipt Date: 20111010
  Transmission Date: 20120403
  Serious: Yes (Hospitalization)
  Sender: FDA-Public Use
  Company Number: US-US-EMD SERONO, INC.-7078253

PATIENT
  Sex: Male
  Weight: 79 kg

DRUGS (9)
  1. FINASTERIDE [Concomitant]
  2. TIZANIDINE HCL [Concomitant]
  3. FLUOXETINE [Concomitant]
     Indication: DEPRESSION
  4. SIMVASTATIN [Concomitant]
     Indication: BLOOD CHOLESTEROL
  5. DOXAZOSIN MESYLATE [Concomitant]
  6. BACLOFEN [Concomitant]
  7. AMPYRA [Concomitant]
  8. REBIF [Suspect]
     Indication: RELAPSING-REMITTING MULTIPLE SCLEROSIS
     Route: 058
     Dates: start: 20021112
  9. VITAMIN D [Concomitant]

REACTIONS (4)
  - INJECTION SITE ERYTHEMA [None]
  - INJECTION SITE NECROSIS [None]
  - INJECTION SITE INFECTION [None]
  - INJECTION SITE PAIN [None]
